FAERS Safety Report 5951182-1 (Version None)
Quarter: 2008Q4

REPORT INFORMATION
  Report Type: 
  Country: None (occurrence: None)
  Receive Date: 20081112
  Receipt Date: 20081112
  Transmission Date: 20090506
  Serious: No
  Sender: FDA-Public Use
  Company Number: None

PATIENT
  Age: 18 Year
  Sex: Female
  Weight: 77.1115 kg

DRUGS (1)
  1. DEPO-PROVERA [Suspect]

REACTIONS (2)
  - PREMATURE MENOPAUSE [None]
  - WEIGHT INCREASED [None]
